FAERS Safety Report 10023841 (Version 1)
Quarter: 2014Q1

REPORT INFORMATION
  Report Type: Spontaneous
  Country: US (occurrence: None)
  Receive Date: 20140122
  Receipt Date: 20140122
  Transmission Date: 20141002
  Serious: Yes (Other)
  Sender: FDA-Public Use
  Company Number: AG-2012-1816

PATIENT
  Age: 76 Year
  Sex: 0

DRUGS (2)
  1. CHLORAMBUCIL [Suspect]
     Route: 048
     Dates: start: 20120917, end: 20120926
  2. SOLU-MEDRO [Suspect]
     Route: 042
     Dates: start: 20120917, end: 20120926

REACTIONS (1)
  - Chronic lymphocytic leukaemia [None]
